FAERS Safety Report 7477686-0 (Version None)
Quarter: 2011Q2

REPORT INFORMATION
  Report Type: 
  Country: None (occurrence: None)
  Receive Date: 20110513
  Receipt Date: 20110329
  Transmission Date: 20111010
  Serious: Yes (Hospitalization, Other)
  Sender: FDA-Public Use
  Company Number: US-BAYER-201029751NA

PATIENT
  Age: 47 Year
  Sex: Female

DRUGS (7)
  1. MULTIVITAMIN PREPARATION + MINERAL SUPPLEMENT [Concomitant]
     Dosage: UNK
     Dates: start: 20050101
  2. YAZ [Suspect]
     Indication: PREMENSTRUAL SYNDROME
  3. ADVIL LIQUI-GELS [Concomitant]
     Dosage: UNK UNK, PRN
  4. YAZ [Suspect]
     Indication: CONTRACEPTION
     Dosage: 1 DF, QD
     Dates: start: 20020101, end: 20040101
  5. VITAMIN C [Concomitant]
     Dosage: UNK
     Dates: start: 20050101
  6. BIAXIN [Concomitant]
     Dosage: 500 MG, BID
     Dates: start: 20040103
  7. ALBUTEROL INHALER [Concomitant]
     Dosage: UNK
     Dates: start: 20050831

REACTIONS (7)
  - CEREBROVASCULAR ACCIDENT [None]
  - HYPERHIDROSIS [None]
  - HYPOAESTHESIA [None]
  - TRANSIENT ISCHAEMIC ATTACK [None]
  - DIZZINESS [None]
  - NAUSEA [None]
  - SPEECH DISORDER [None]
